FAERS Safety Report 7671977-6 (Version None)
Quarter: 2011Q3

REPORT INFORMATION
  Report Type: 
  Country: None (occurrence: None)
  Receive Date: 20110809
  Receipt Date: 20110727
  Transmission Date: 20111222
  Serious: Yes (Hospitalization)
  Sender: FDA-Public Use
  Company Number: DE-GLAXOSMITHKLINE-B0737863A

PATIENT
  Sex: Male

DRUGS (13)
  1. ASPIRIN [Concomitant]
     Dates: start: 20110101
  2. SIMVASTATIN [Concomitant]
     Dates: start: 20110101, end: 20110501
  3. PANTOPRAZOLE [Concomitant]
  4. SALMETEROL [Concomitant]
     Dates: start: 20110101, end: 20110501
  5. ATACAND [Concomitant]
     Dates: start: 20110101
  6. CHLORAMBUCIL [Suspect]
     Indication: CHRONIC LYMPHOCYTIC LEUKAEMIA
     Dosage: 34MG EVERY TWO WEEKS
     Route: 048
     Dates: start: 20100914, end: 20110308
  7. AMLODIPINE [Concomitant]
     Dates: end: 20110131
  8. RAMIPRIL [Concomitant]
     Dates: end: 20110131
  9. FERRO SANOL [Concomitant]
     Dates: end: 20110129
  10. RITUXIMAB [Suspect]
     Indication: CHRONIC LYMPHOCYTIC LEUKAEMIA
     Dosage: 906MG MONTHLY
     Route: 042
     Dates: start: 20100914, end: 20110222
  11. PENTAERYTHRITOL TETRANITRATE [Concomitant]
     Dates: start: 20110101, end: 20110501
  12. AMPHOTERICIN B [Concomitant]
     Dates: start: 20110101, end: 20110501
  13. PREDNISOLONE [Concomitant]

REACTIONS (2)
  - ENDOCARDITIS [None]
  - INFECTIVE EXACERBATION OF CHRONIC OBSTRUCTIVE AIRWAYS DISEASE [None]
